FAERS Safety Report 8772610 (Version 1)
Quarter: 2012Q4

REPORT INFORMATION
  Report Type: 
  Country: US (occurrence: US)
  Receive Date: 20120905
  Receipt Date: 20120905
  Transmission Date: 20130627
  Serious: Yes (Hospitalization)
  Sender: FDA-Public Use
  Company Number: US-BAYER-2012-090949

PATIENT
  Age: 35 Year
  Sex: Female

DRUGS (5)
  1. OCELLA [Suspect]
  2. DECADRON [Concomitant]
  3. PEPCID [Concomitant]
  4. NORCO [Concomitant]
     Indication: PAIN
     Dosage: 5/325 mg
  5. DILANTIN [Concomitant]
     Dosage: 100 mg, TID

REACTIONS (3)
  - Cerebral haemorrhage [None]
  - Cerebral infarction [None]
  - Intracranial venous sinus thrombosis [None]
